FAERS Safety Report 5842351-X (Version None)
Quarter: 2008Q3

REPORT INFORMATION
  Report Type: 
  Country: None (occurrence: None)
  Receive Date: 20080812
  Receipt Date: 20080806
  Transmission Date: 20090109
  Serious: Yes (Death, Hospitalization, Other)
  Sender: FDA-Public Use
  Company Number: BE-ABBOTT-08P-013-0462083-00

PATIENT
  Sex: Female

DRUGS (1)
  1. TEVETEN [Suspect]
     Indication: HYPERTENSION
     Route: 048
     Dates: start: 20070601, end: 20070803

REACTIONS (9)
  - ABDOMINAL ADHESIONS [None]
  - ABDOMINAL NEOPLASM [None]
  - DYSPNOEA [None]
  - GASTROINTESTINAL DISORDER [None]
  - INTESTINAL OBSTRUCTION [None]
  - METASTASES TO LARGE INTESTINE [None]
  - METASTASES TO PLEURA [None]
  - OVARIAN CANCER [None]
  - PULMONARY EMBOLISM [None]
